FAERS Safety Report 5167956-3 (Version None)
Quarter: 2006Q4

REPORT INFORMATION
  Report Type: 
  Country: None (occurrence: None)
  Receive Date: 20061208
  Receipt Date: 20051115
  Transmission Date: 20070319
  Serious: No
  Sender: FDA-Public Use
  Company Number: US-GLAXOSMITHKLINE-A0582369A

PATIENT
  Age: 51 Year
  Sex: Female

DRUGS (5)
  1. AVANDAMET [Suspect]
     Dosage: 1TAB TWICE PER DAY
     Route: 048
  2. GLUCOTROL [Concomitant]
  3. GLIPIZIDE [Concomitant]
  4. CRESTOR [Concomitant]
  5. DIOVAN [Concomitant]

REACTIONS (1)
  - WEIGHT INCREASED [None]
